FAERS Safety Report 8405449-8 (Version None)
Quarter: 2012Q2

REPORT INFORMATION
  Report Type: 
  Country: None (occurrence: None)
  Receive Date: 20120604
  Receipt Date: 20120529
  Transmission Date: 20120825
  Serious: Yes (Hospitalization)
  Sender: FDA-Public Use
  Company Number: DE-BIOGENIDEC-2012BI019068

PATIENT
  Age: 32 Year
  Sex: Female

DRUGS (3)
  1. DIBENZYRAN [Concomitant]
     Indication: INCONTINENCE
     Dates: start: 20080401
  2. TYSABRI [Suspect]
     Indication: MULTIPLE SCLEROSIS
     Route: 042
     Dates: start: 20070822
  3. BISOPROLOL FUMARATE [Concomitant]
     Indication: TACHYCARDIA
     Dates: start: 20080401

REACTIONS (1)
  - TRIGEMINAL NEURALGIA [None]
